FAERS Safety Report 9257551 (Version 3)
Quarter: 2014Q2

REPORT INFORMATION
  Report Type: Spontaneous
  Country: US (occurrence: US)
  Receive Date: 20130426
  Receipt Date: 20140401
  Transmission Date: 20141212
  Serious: No
  Sender: FDA-Public Use
  Company Number: US-ASTRAZENECA-2013SE27708

PATIENT
  Age: 60 Year
  Sex: Female
  Weight: 44.5 kg

DRUGS (18)
  1. NEXIUM [Suspect]
     Indication: GASTROOESOPHAGEAL REFLUX DISEASE
     Route: 048
     Dates: start: 2005
  2. NEXIUM [Suspect]
     Indication: GASTROOESOPHAGEAL REFLUX DISEASE
     Route: 048
     Dates: start: 20061204
  3. NEXIUM [Suspect]
     Indication: GASTROOESOPHAGEAL REFLUX DISEASE
     Dosage: ONCE
     Route: 048
     Dates: start: 20061214, end: 20120719
  4. PREVACID [Concomitant]
     Dates: start: 2005
  5. TUMS [Concomitant]
  6. ALPRAZOLAM [Concomitant]
     Dates: start: 20061120
  7. OXYCODONE [Concomitant]
     Dates: start: 20061107
  8. AMITRIPTYLINE [Concomitant]
     Dates: start: 20061115
  9. CARISOPRODOL [Concomitant]
     Dates: start: 20061121
  10. PROMETHAZINE [Concomitant]
     Dates: start: 20061220
  11. OMEPRAZOLE [Concomitant]
     Dates: start: 20070102
  12. WARFARIN [Concomitant]
     Dates: start: 20070206
  13. TEMAZEPAM [Concomitant]
     Dates: start: 20070521
  14. TRICOR [Concomitant]
     Dates: start: 20070625
  15. FLUCONAZOLE [Concomitant]
     Dates: start: 20080501
  16. FUROSEMIDE [Concomitant]
     Dates: start: 20100907
  17. METOCLOPRAM [Concomitant]
     Dates: start: 20110304
  18. HYDROCODONE W/APAP [Concomitant]
     Dosage: 7.5/500 MG
     Dates: start: 20061117

REACTIONS (6)
  - Osteoporosis [Unknown]
  - Wrist fracture [Unknown]
  - Bone disorder [Unknown]
  - Crohn^s disease [Unknown]
  - Arterial disorder [Unknown]
  - Depression [Unknown]
